FAERS Safety Report 10902871 (Version 1)
Quarter: 2015Q1

REPORT INFORMATION
  Report Type: Spontaneous
  Country: FR (occurrence: FR)
  Receive Date: 20150310
  Receipt Date: 20150310
  Transmission Date: 20150721
  Serious: Yes (Hospitalization)
  Sender: FDA-Public Use
  Company Number: FR-ALLERGAN-1503980US

PATIENT
  Age: 14 Year
  Sex: Male

DRUGS (1)
  1. TROSPIUM CHLORIDE UNK [Suspect]
     Active Substance: TROSPIUM CHLORIDE
     Indication: URINARY INCONTINENCE
     Dosage: 20 MG, BID
     Route: 048
     Dates: start: 20120115, end: 20141225

REACTIONS (3)
  - Withdrawal syndrome [Recovered/Resolved]
  - Off label use [Unknown]
  - Pyelonephritis [Recovered/Resolved]

NARRATIVE: CASE EVENT DATE: 20141229
